FAERS Safety Report 6305892-7 (Version None)
Quarter: 2009Q3

REPORT INFORMATION
  Report Type: 
  Country: None (occurrence: None)
  Receive Date: 20090812
  Receipt Date: 20090805
  Transmission Date: 20100115
  Serious: Yes (Other)
  Sender: FDA-Public Use
  Company Number: US-BAYER-200929214NA

PATIENT
  Age: 23 Year
  Sex: Female
  Weight: 77 kg

DRUGS (1)
  1. CIPRO [Suspect]
     Indication: INFECTION
     Dates: start: 20090714

REACTIONS (2)
  - CONVULSION [None]
  - TONGUE BITING [None]
